FAERS Safety Report 22291190 (Version 1)
Quarter: 2023Q2

REPORT INFORMATION
  Report Type: Spontaneous
  Country: US (occurrence: US)
  Receive Date: 20230506
  Receipt Date: 20230506
  Transmission Date: 20230721
  Serious: Yes (Hospitalization)
  Sender: FDA-Public Use
  Company Number: US-AUROBINDO-AUR-APL-2023-033902

PATIENT
  Age: 16 Year
  Sex: Female

DRUGS (6)
  1. TERBINAFINE [Suspect]
     Active Substance: TERBINAFINE
     Indication: Rash pruritic
     Dosage: 250 MILLIGRAM, ONCE A DAY
     Route: 048
  2. BUTENAFINE HYDROCHLORIDE [Suspect]
     Active Substance: BUTENAFINE HYDROCHLORIDE
     Indication: Rash pruritic
     Dosage: UNK
     Route: 065
  3. CLOTRIMAZOLE [Suspect]
     Active Substance: CLOTRIMAZOLE
     Indication: Rash pruritic
     Dosage: UNK UNK, 3 TIMES A DAY FOR 2 WEEKS OR UNTIL THE SKIN WAS CLEAR FOR 2 TO 3 DAYS
     Route: 061
  4. TERBINAFINE [Suspect]
     Active Substance: TERBINAFINE
     Indication: Rash pruritic
     Dosage: UNK, TWO TIMES A DAY
     Route: 061
  5. FLUCONAZOLE [Concomitant]
     Active Substance: FLUCONAZOLE
     Indication: Candida infection
     Dosage: 100 MILLIGRAM
     Route: 048
  6. KETOCONAZOLE [Concomitant]
     Active Substance: KETOCONAZOLE
     Indication: Candida infection
     Dosage: UNK UNK, TWO TIMES A DAY
     Route: 061

REACTIONS (1)
  - Drug ineffective [Unknown]
